FAERS Safety Report 15925549 (Version 4)
Quarter: 2019Q1

REPORT INFORMATION
  Report Type: Spontaneous
  Country: US (occurrence: US)
  Receive Date: 20190206
  Receipt Date: 20190320
  Transmission Date: 20190417
  Serious: No
  Sender: FDA-Public Use
  Company Number: US-PFIZER INC-2019048163

PATIENT

DRUGS (2)
  1. EPINEPHRINE/LIDOCAINE HYDROCHLORIDE [Suspect]
     Active Substance: EPINEPHRINE\LIDOCAINE HYDROCHLORIDE
     Indication: HYPOAESTHESIA
     Dosage: UNK
  2. SODIUM BICARBONATE. [Suspect]
     Active Substance: SODIUM BICARBONATE
     Indication: HYPOAESTHESIA
     Dosage: UNK

REACTIONS (6)
  - Procedural complication [None]
  - Injection site induration [Unknown]
  - Product complaint [None]
  - Injection site pain [Unknown]
  - Drug ineffective [Unknown]
  - Injection site erythema [Unknown]

NARRATIVE: CASE EVENT DATE: 20190129
